FAERS Safety Report 8840915 (Version 2)
Quarter: 2015Q3

REPORT INFORMATION
  Report Type: Report from Study
  Country: US (occurrence: US)
  Receive Date: 20121015
  Receipt Date: 20150818
  Transmission Date: 20151125
  Serious: Yes (Other)
  Sender: FDA-Public Use
  Company Number: US-ROCHE-1137283

PATIENT
  Sex: Male
  Weight: 100.45 kg

DRUGS (2)
  1. NUTROPIN AQ [Suspect]
     Active Substance: SOMATROPIN
     Indication: HYPOTHALAMO-PITUITARY DISORDER
     Route: 065
  2. NUTROPIN AQ [Suspect]
     Active Substance: SOMATROPIN
     Indication: HYPOTHALAMO-PITUITARY DISORDER
     Route: 065

REACTIONS (6)
  - Libido decreased [Unknown]
  - Dizziness [Unknown]
  - Fatigue [Unknown]
  - Blood testosterone decreased [Unknown]
  - Depression [Unknown]
  - Malaise [Unknown]
